FAERS Safety Report 8140529-6 (Version None)
Quarter: 2012Q1

REPORT INFORMATION
  Report Type: 
  Country: None (occurrence: None)
  Receive Date: 20120214
  Receipt Date: 20120214
  Transmission Date: 20120608
  Serious: Yes (Hospitalization)
  Sender: FDA-Public Use
  Company Number: None

PATIENT
  Sex: Male
  Weight: 87.3 kg

DRUGS (6)
  1. VINCRISTINE SULFATE [Suspect]
     Dosage: 1.72 MG
  2. DOXORUBICIN HCL [Suspect]
     Dosage: 124 MG
  3. CYCLOPHOSPHAMIDE [Suspect]
     Dosage: 2333 MG
  4. PREDNISONE TAB [Suspect]
     Dosage: 650 MG
  5. RITUXIMAB MOAB C2B8 ANTI CD20, CHIMERIC) [Suspect]
     Dosage: 800 MG
  6. ETOPOSIDE [Suspect]
     Dosage: 512 MG

REACTIONS (6)
  - GLOSSODYNIA [None]
  - CHILLS [None]
  - HYPOPHAGIA [None]
  - URINE OUTPUT DECREASED [None]
  - BODY TEMPERATURE INCREASED [None]
  - LETHARGY [None]
